FAERS Safety Report 16989743 (Version 1)
Quarter: 2019Q4

REPORT INFORMATION
  Report Type: Spontaneous
  Country: US (occurrence: US)
  Receive Date: 20190919
  Receipt Date: 20190919
  Transmission Date: 20200122
  Serious: No
  Sender: FDA-Public Use
  Company Number: None

PATIENT
  Sex: Male

DRUGS (1)
  1. TALTZ [Suspect]
     Active Substance: IXEKIZUMAB
     Indication: DERMATITIS ATOPIC
     Route: 058
     Dates: start: 20190627

REACTIONS (4)
  - Pruritus [None]
  - Urticaria [None]
  - Incorrect dose administered [None]
  - Erythema [None]
